FAERS Safety Report 7658494-4 (Version None)
Quarter: 2011Q3

REPORT INFORMATION
  Report Type: 
  Country: None (occurrence: None)
  Receive Date: 20110805
  Receipt Date: 20110721
  Transmission Date: 20111222
  Serious: Yes (Hospitalization, Other)
  Sender: FDA-Public Use
  Company Number: PR-BAYER-2010-007078

PATIENT
  Age: 27 Year
  Sex: Female
  Weight: 90.703 kg

DRUGS (7)
  1. METROGEL [Concomitant]
  2. ALTEPLASE [Concomitant]
  3. DIFLUCAN [Concomitant]
     Dosage: 200 MG, UNK
  4. LASIX [Concomitant]
  5. VALTREX [Concomitant]
     Indication: HERPES SIMPLEX
  6. HEPARIN [Concomitant]
  7. YASMIN [Suspect]
     Dosage: UNK
     Route: 048
     Dates: start: 20030101, end: 20070101

REACTIONS (2)
  - PULMONARY EMBOLISM [None]
  - PAIN [None]
